FAERS Safety Report 20457872 (Version 1)
Quarter: 2022Q1

REPORT INFORMATION
  Report Type: Report from Study
  Country: US (occurrence: US)
  Receive Date: 20220210
  Receipt Date: 20220210
  Transmission Date: 20220423
  Serious: Yes (Death, Hospitalization, Other)
  Sender: FDA-Public Use
  Company Number: US-ABBVIE-22K-163-4259458-00

PATIENT
  Sex: Male
  Weight: 45.400 kg

DRUGS (6)
  1. DUOPA [Suspect]
     Active Substance: CARBIDOPA\LEVODOPA
     Indication: Parkinson^s disease
     Dosage: 100 ML 1 CASSETTE, MD 8 ML, CD 3.5 ML, ED 1 ML, UP TO 16 HOURS EACH DAY
     Route: 050
     Dates: start: 20201109
  2. DUOPA [Suspect]
     Active Substance: CARBIDOPA\LEVODOPA
     Dosage: 100 ML 1 CASSETTE, MD 8 ML, CD 3.5 ML, ED 1 ML, UP TO 16 HOURS EACH DAY
     Route: 050
     Dates: start: 202103, end: 20220115
  3. DUOPA [Suspect]
     Active Substance: CARBIDOPA\LEVODOPA
     Dosage: 100 ML 1 CASSETTE, MD 8 ML, CD 3.5 ML, ED 1 ML, UP TO 16 HOURS EACH DAY
     Route: 050
     Dates: start: 20220124, end: 20220131
  4. MODERNA COVID-19 VACCINE [Concomitant]
     Active Substance: ELASOMERAN
     Indication: COVID-19 immunisation
     Dosage: FIRST DOSE
     Route: 030
     Dates: start: 202102, end: 202102
  5. MODERNA COVID-19 VACCINE [Concomitant]
     Active Substance: ELASOMERAN
     Dosage: SECOND DOSE
     Route: 030
     Dates: start: 202102, end: 202102
  6. MODERNA COVID-19 VACCINE [Concomitant]
     Active Substance: ELASOMERAN
     Dosage: BOOSTER DOSE
     Route: 030
     Dates: start: 202109, end: 202109

REACTIONS (7)
  - Parkinson^s disease [Fatal]
  - Weight decreased [Not Recovered/Not Resolved]
  - Pneumonia aspiration [Recovering/Resolving]
  - Feeding disorder [Not Recovered/Not Resolved]
  - Device use issue [Unknown]
  - Device dislocation [Unknown]
  - Dysphagia [Not Recovered/Not Resolved]

NARRATIVE: CASE EVENT DATE: 20210101
